FAERS Safety Report 8916546 (Version 1)
Quarter: 2012Q4

REPORT INFORMATION
  Report Type: 
  Country: JP (occurrence: JP)
  Receive Date: 20121120
  Receipt Date: 20121120
  Transmission Date: 20130627
  Serious: Yes (Hospitalization)
  Sender: FDA-Public Use
  Company Number: JP-ROCHE-254893

PATIENT
  Age: 10 Year
  Sex: Male
  Weight: 34.4 kg

DRUGS (6)
  1. ROCEPHIN [Suspect]
     Indication: HAEMOPHILUS INFECTION
     Route: 042
     Dates: start: 20001208, end: 20001210
  2. MINOMYCIN [Concomitant]
     Indication: PNEUMONIA MYCOPLASMAL
     Route: 048
     Dates: start: 20001206, end: 20001210
  3. AMIKACIN SULFATE [Concomitant]
     Indication: PNEUMONIA MYCOPLASMAL
     Route: 042
     Dates: start: 20001206, end: 20001207
  4. BACCIDAL [Concomitant]
     Indication: PNEUMONIA MYCOPLASMAL
     Route: 048
     Dates: start: 20001210, end: 20001212
  5. RO 4908463 (CARBAPENEM) [Concomitant]
     Indication: PNEUMONIA MYCOPLASMAL
     Route: 042
     Dates: start: 20001210, end: 20001212
  6. VICCILLIN-S [Concomitant]
     Indication: PNEUMONIA MYCOPLASMAL
     Route: 042
     Dates: start: 20001206, end: 20001208

REACTIONS (6)
  - Rash [Recovering/Resolving]
  - Liver injury [Recovering/Resolving]
  - Pneumonia viral [Unknown]
  - Blood creatine phosphokinase increased [Unknown]
  - Hyponatraemia [Unknown]
  - Hypoproteinaemia [Unknown]
